FAERS Safety Report 6525260-2 (Version None)
Quarter: 2010Q1

REPORT INFORMATION
  Report Type: 
  Country: None (occurrence: None)
  Receive Date: 20100104
  Receipt Date: 20091222
  Transmission Date: 20100710
  Serious: Yes (Hospitalization, Other)
  Sender: FDA-Public Use
  Company Number: PL-PFIZER INC-2009301365

PATIENT
  Age: 31 Year
  Sex: Male

DRUGS (2)
  1. XANAX [Suspect]
     Indication: ANXIETY
     Dosage: 0.25 MG, AS NEEDED
     Route: 048
     Dates: start: 19980101, end: 20091101
  2. TRAMAL [Concomitant]

REACTIONS (5)
  - DRUG DEPENDENCE [None]
  - HEPATIC ENZYME INCREASED [None]
  - LOSS OF CONSCIOUSNESS [None]
  - MUSCULOSKELETAL STIFFNESS [None]
  - SYNCOPE [None]
